FAERS Safety Report 6964388-X (Version None)
Quarter: 2010Q3

REPORT INFORMATION
  Report Type: 
  Country: None (occurrence: None)
  Receive Date: 20100903
  Receipt Date: 20100827
  Transmission Date: 20110219
  Serious: Yes (Death, Hospitalization)
  Sender: FDA-Public Use
  Company Number: US-RANBAXY-2010US-37693

PATIENT

DRUGS (3)
  1. DOXYCYCLINE HYDROCHLORIDE [Suspect]
     Indication: LYME DISEASE
     Dosage: UNK, UNK
     Route: 065
  2. CEFUROXIME AXETIL [Suspect]
     Indication: LYME DISEASE
     Dosage: UNK, UNK
     Route: 048
  3. TELITHROMYCIN [Suspect]
     Indication: LYME DISEASE
     Dosage: UNK, UNK
     Route: 048

REACTIONS (1)
  - CLOSTRIDIUM DIFFICILE COLITIS [None]
